FAERS Safety Report 7232321-1 (Version None)
Quarter: 2011Q1

REPORT INFORMATION
  Report Type: 
  Country: None (occurrence: None)
  Receive Date: 20110106
  Receipt Date: 20101221
  Transmission Date: 20110831
  Serious: Yes (Life-Threatening, Hospitalization, Other)
  Sender: FDA-Public Use
  Company Number: 2009000340

PATIENT
  Age: 83 Year
  Sex: Male

DRUGS (8)
  1. NICAMETATE (NICAMETATE) [Concomitant]
  2. GEMCITABINE [Suspect]
     Indication: PANCREATIC CARCINOMA METASTATIC
     Dosage: (13200 MG,WEEKLY), INTRAVENOUS
     Route: 042
     Dates: start: 20081223
  3. CIMETIDINE [Concomitant]
  4. ERLOTINIB HYDROCHLORIDE [Suspect]
     Indication: PANCREATIC CARCINOMA METASTATIC
     Dosage: (100 MG,QD), ORAL
     Route: 048
     Dates: start: 20081223
  5. GLYCAL-AMIN [Concomitant]
  6. LAXATIVE NOS [Suspect]
     Indication: PRODUCT USED FOR UNKNOWN INDICATION
  7. COMBIZYM (COMBIZYM) [Concomitant]
  8. MODURETIC 5-50 [Concomitant]

REACTIONS (4)
  - PLATELET COUNT DECREASED [None]
  - DIARRHOEA [None]
  - ANAEMIA [None]
  - HYPOTENSION [None]
